FAERS Safety Report 9596242 (Version 1)
Quarter: 2013Q4

REPORT INFORMATION
  Report Type: Spontaneous
  Country: SG (occurrence: SG)
  Receive Date: 20131004
  Receipt Date: 20131004
  Transmission Date: 20140711
  Serious: Yes (Hospitalization)
  Sender: FDA-Public Use
  Company Number: SG-ABBVIE-13P-141-1150875-00

PATIENT
  Sex: Female

DRUGS (2)
  1. LEUPRORELIN ACETATE [Suspect]
     Indication: PRODUCT USED FOR UNKNOWN INDICATION
  2. FSH STIMULATION [Concomitant]
     Indication: PRODUCT USED FOR UNKNOWN INDICATION

REACTIONS (1)
  - Ovarian hyperstimulation syndrome [Unknown]
